FAERS Safety Report 14785123 (Version 5)
Quarter: 2018Q2

REPORT INFORMATION
  Report Type: Spontaneous
  Country: RO (occurrence: RO)
  Receive Date: 20180420
  Receipt Date: 20180619
  Transmission Date: 20180711
  Serious: Yes (Death, Other)
  Sender: FDA-Public Use
  Company Number: RO-PFIZER INC-2018158794

PATIENT
  Age: 61 Year
  Sex: Female

DRUGS (16)
  1. CYCLOPHOSPHAMIDE. [Suspect]
     Active Substance: CYCLOPHOSPHAMIDE
     Dosage: HYPER CVAD PROTOCOL
  2. FOLINIC ACID [Suspect]
     Active Substance: LEUCOVORIN
     Dosage: HYPER CVAD PROTOCOL
  3. DEXAMETHASONE. [Suspect]
     Active Substance: DEXAMETHASONE
     Dosage: 4 MG, HYPER CVAD PROTOCOL
     Route: 042
     Dates: start: 20180109
  4. VINCRISTINE [Suspect]
     Active Substance: VINCRISTINE
     Dosage: HYPER CVAD PROTOCOL
  5. DOXORUBICIN HCL [Suspect]
     Active Substance: DOXORUBICIN HYDROCHLORIDE
     Dosage: HYPER CVAD PROTOCOL
  6. TARGOCID [Concomitant]
     Active Substance: TEICOPLANIN
     Dosage: 400 MG, UNK
     Route: 048
  7. METHYLPREDNISOLONE. [Suspect]
     Active Substance: METHYLPREDNISOLONE
     Dosage: HYPER CVAD PROTOCOL
  8. ALLOPURINOL. [Concomitant]
     Active Substance: ALLOPURINOL
     Dosage: UNK
  9. METHOTREXATE. [Concomitant]
     Active Substance: METHOTREXATE
     Dosage: 15 MG, HYPER CVAD PROTOCOL
     Route: 037
  10. METHOTREXAT [Concomitant]
     Active Substance: METHOTREXATE
     Dosage: 15 MG, UNK
     Route: 037
  11. CYTOSAR [Concomitant]
     Active Substance: CYTARABINE
     Dosage: 40 MG, 1X/DAY (QD)
     Route: 048
     Dates: start: 20180110, end: 20180111
  12. CYTARABINE. [Suspect]
     Active Substance: CYTARABINE
     Dosage: HYPER CVAD PROTOCOL
  13. ICLUSIG [Suspect]
     Active Substance: PONATINIB
     Indication: ACUTE LYMPHOCYTIC LEUKAEMIA
     Dosage: 45 MG, DAILY
     Route: 048
     Dates: start: 20170905, end: 20180112
  14. CEFTAMIL [Suspect]
     Active Substance: CEFTAZIDIME
     Indication: SKIN INFECTION
     Dosage: 1 G, UNK
     Route: 042
     Dates: start: 20180112, end: 20180113
  15. FILGRASTIM [Concomitant]
     Active Substance: FILGRASTIM
     Dosage: UNK
  16. FLUCONAZOLE. [Concomitant]
     Active Substance: FLUCONAZOLE
     Dosage: UNK

REACTIONS (4)
  - Dermatitis bullous [Fatal]
  - Septic shock [Fatal]
  - Rash [Recovering/Resolving]
  - Staphylococcal sepsis [Fatal]

NARRATIVE: CASE EVENT DATE: 20170920
